FAERS Safety Report 9400196 (Version 1)
Quarter: 2013Q3

REPORT INFORMATION
  Report Type: Spontaneous
  Country: US (occurrence: US)
  Receive Date: 20130715
  Receipt Date: 20130715
  Transmission Date: 20140515
  Serious: Yes (Hospitalization)
  Sender: FDA-Public Use
  Company Number: US-BAYER-2013-085365

PATIENT
  Age: 41 Year
  Sex: Female
  Weight: 81.63 kg

DRUGS (4)
  1. YAZ [Suspect]
  2. IBUPROFEN [Concomitant]
  3. FLUOXETINE [Concomitant]
  4. DITROPAN [Concomitant]

REACTIONS (1)
  - Deep vein thrombosis [None]
